FAERS Safety Report 6918739-2 (Version None)
Quarter: 2010Q3

REPORT INFORMATION
  Report Type: 
  Country: None (occurrence: None)
  Receive Date: 20100811
  Receipt Date: 20100728
  Transmission Date: 20110219
  Serious: Yes (Other)
  Sender: FDA-Public Use
  Company Number: PHHY2010US35424

PATIENT
  Sex: Female
  Weight: 79.1 kg

DRUGS (5)
  1. RECLAST [Suspect]
     Indication: OSTEOPOROSIS
     Dosage: 5 MG, ANNUAL DOSE
     Dates: start: 20091231, end: 20091231
  2. VITAMIN TAB [Concomitant]
     Indication: SUPPLEMENTATION THERAPY
     Dosage: 1 DAILY
     Route: 048
  3. CALCIUM [Concomitant]
     Indication: OSTEOPOROSIS
     Dosage: 430 MG/500 UNITS, 2 DAILY
     Route: 048
     Dates: start: 20091203
  4. FISH OIL [Concomitant]
     Indication: CARDIAC DISORDER
     Dosage: UNK
     Route: 048
  5. FISH OIL [Concomitant]
     Indication: SKIN DISORDER

REACTIONS (12)
  - ARTHRALGIA [None]
  - CATARACT OPERATION [None]
  - DYSSTASIA [None]
  - EYE INFLAMMATION [None]
  - FACIAL PAIN [None]
  - HYPOAESTHESIA ORAL [None]
  - MUSCLE SPASMS [None]
  - MUSCULOSKELETAL STIFFNESS [None]
  - PAIN [None]
  - PAIN IN EXTREMITY [None]
  - PARAESTHESIA ORAL [None]
  - VISUAL IMPAIRMENT [None]
